FAERS Safety Report 17550341 (Version 1)
Quarter: 2020Q1

REPORT INFORMATION
  Report Type: Report from Study
  Country: PL (occurrence: PL)
  Receive Date: 20200317
  Receipt Date: 20200317
  Transmission Date: 20200409
  Serious: Yes (Other)
  Sender: FDA-Public Use
  Company Number: PL-PFIZER INC-2020109781

PATIENT
  Age: 64 Year
  Sex: Female

DRUGS (8)
  1. DILTIAZEM HCL [Suspect]
     Active Substance: DILTIAZEM HYDROCHLORIDE
  2. PERINDOPRIL [Concomitant]
     Active Substance: PERINDOPRIL
  3. EPLERENONE. [Concomitant]
     Active Substance: EPLERENONE
  4. ASPIRINE [Concomitant]
     Active Substance: ASPIRIN
  5. CLOPIDOGREL [Concomitant]
     Active Substance: CLOPIDOGREL BISULFATE
  6. POTASSIUM [Concomitant]
     Active Substance: POTASSIUM
  7. TORASEMIDE [Concomitant]
     Active Substance: TORSEMIDE
  8. QUETIAPINE. [Interacting]
     Active Substance: QUETIAPINE

REACTIONS (4)
  - Femoral neck fracture [Unknown]
  - Drug interaction [Unknown]
  - Fall [Unknown]
  - Vision blurred [Unknown]
